FAERS Safety Report 21639606 (Version 1)
Quarter: 2022Q4

REPORT INFORMATION
  Report Type: Spontaneous
  Country: US (occurrence: US)
  Receive Date: 20221124
  Receipt Date: 20221124
  Transmission Date: 20230113
  Serious: Yes (Hospitalization)
  Sender: FDA-Public Use
  Company Number: US-RECORDATI-2022006005

PATIENT

DRUGS (1)
  1. SIGNIFOR [Suspect]
     Active Substance: PASIREOTIDE DIASPARTATE
     Indication: Cushing^s syndrome
     Dosage: 0.9 MILLIGRAM, BID
     Route: 058
     Dates: start: 202210, end: 20221116

REACTIONS (2)
  - Heart rate increased [Recovered/Resolved]
  - Drug ineffective [Recovered/Resolved]

NARRATIVE: CASE EVENT DATE: 20220101
